FAERS Safety Report 9204848 (Version 1)
Quarter: 2013Q2

REPORT INFORMATION
  Report Type: Spontaneous
  Country: FI (occurrence: FI)
  Receive Date: 20130402
  Receipt Date: 20130402
  Transmission Date: 20140414
  Serious: Yes (Hospitalization)
  Sender: FDA-Public Use
  Company Number: FI-UCBSA-081669

PATIENT
  Age: 62 Year
  Sex: Female

DRUGS (14)
  1. CIMZIA [Suspect]
     Indication: RHEUMATOID ARTHRITIS
     Route: 058
     Dates: start: 20121022
  2. KALCIPOS-D [Concomitant]
     Dosage: 500 MG/400 IU, TWICE A DAY
     Dates: start: 20120221
  3. COHEMIN DEPOT [Concomitant]
     Dosage: 1MG/ML
     Dates: start: 20130111
  4. LOSATRIX COMP [Concomitant]
     Dosage: 50/12.5 MG ONCE A DAY
     Dates: start: 20121022
  5. LIPCUT [Concomitant]
     Dates: start: 20110621
  6. VAGIFEM [Concomitant]
     Dates: start: 20121224
  7. EVOREL CONTI [Concomitant]
     Dates: start: 20121224
  8. THYROXIN [Concomitant]
     Dosage: 0.1 MG ONCE A DAY EXCEPT FRIDAYS 1.5 TABLET
     Dates: start: 20120723
  9. TREXAN [Concomitant]
     Dates: start: 20120611
  10. IBUMAX [Concomitant]
     Dosage: 600 MG, 1-3 TABLET
     Dates: start: 20121022
  11. VOLTAREN EMULGEL [Concomitant]
     Dosage: 11.6 MG/G 1-3 TIMES PER DAY
     Dates: start: 20120918
  12. DOLAN [Concomitant]
     Dosage: 1-2 TABLET, 3 TIMES A DAY
     Dates: start: 20120918
  13. TENOX [Concomitant]
     Dosage: 10 MG, 1 -2 TABLET IN EVENING
     Dates: start: 20120330
  14. ACID FOLIC [Concomitant]
     Dosage: 5 MG

REACTIONS (1)
  - Ophthalmic herpes simplex [Recovered/Resolved]
